FAERS Safety Report 5641318-4 (Version None)
Quarter: 2008Q1

REPORT INFORMATION
  Report Type: 
  Country: None (occurrence: None)
  Receive Date: 20080227
  Receipt Date: 20070518
  Transmission Date: 20080703
  Serious: No
  Sender: FDA-Public Use
  Company Number: A0651734A

PATIENT
  Age: 51 Year
  Sex: Female

DRUGS (1)
  1. COMMIT [Suspect]

REACTIONS (3)
  - HYPERSENSITIVITY [None]
  - OEDEMA MOUTH [None]
  - SWOLLEN TONGUE [None]
